FAERS Safety Report 17743082 (Version 1)
Quarter: 2020Q2

REPORT INFORMATION
  Report Type: Report from Study
  Country: KR (occurrence: KR)
  Receive Date: 20200504
  Receipt Date: 20200504
  Transmission Date: 20200714
  Serious: Yes (Death, Hospitalization, Other)
  Sender: FDA-Public Use
  Company Number: KR-BAYER-2020-044646

PATIENT
  Sex: Female

DRUGS (1)
  1. BETAFERON [Suspect]
     Active Substance: INTERFERON BETA-1B
     Indication: MULTIPLE SCLEROSIS
     Dosage: UNK UNK, QOD
     Route: 058
     Dates: start: 200710

REACTIONS (5)
  - Multiple sclerosis relapse [None]
  - Hospitalisation [None]
  - Gait disturbance [None]
  - Death [Fatal]
  - Dysphagia [None]

NARRATIVE: CASE EVENT DATE: 20200410
